FAERS Safety Report 10073602 (Version 1)
Quarter: 2014Q2

REPORT INFORMATION
  Report Type: Spontaneous
  Country: DK (occurrence: FR)
  Receive Date: 20140411
  Receipt Date: 20140411
  Transmission Date: 20141212
  Serious: Yes (Hospitalization)
  Sender: FDA-Public Use
  Company Number: FR-FRI-1000066334

PATIENT
  Age: 75 Year
  Sex: Female

DRUGS (13)
  1. ESCITALOPRAM [Suspect]
     Route: 048
     Dates: end: 20130716
  2. TERCIAN [Suspect]
     Dosage: 50 MG/5 ML DAILY
     Route: 042
     Dates: start: 20130715, end: 20130715
  3. TERCIAN [Suspect]
     Dosage: 2 DF
     Route: 048
     Dates: start: 20130715
  4. NOCTAMIDE [Suspect]
     Dosage: 1 DF
     Route: 048
     Dates: start: 20130715
  5. VALIUM [Suspect]
     Dosage: 10 MG/2 ML
     Route: 042
     Dates: start: 20130715, end: 20130715
  6. ANAFRANIL [Suspect]
     Dosage: 1 DF
     Route: 048
     Dates: start: 20130716, end: 20130716
  7. SERESTA [Suspect]
     Dosage: 30 DF
     Route: 048
     Dates: end: 20130714
  8. SERESTA [Suspect]
     Dosage: 100 MG
     Route: 048
     Dates: start: 20130715, end: 20130716
  9. MIANSERINE [Suspect]
     Dosage: 1 DF
     Route: 048
     Dates: end: 20130714
  10. MIANSERINE [Suspect]
     Dosage: 2 DF
     Route: 048
     Dates: start: 20130715, end: 20130715
  11. LESCOL [Concomitant]
  12. COTAREG [Concomitant]
     Dosage: 80/12.5 MG
  13. LAMALINE [Concomitant]
     Dosage: 1 DF
     Route: 048
     Dates: start: 20130716

REACTIONS (2)
  - Coma [Recovered/Resolved]
  - Drug interaction [Recovered/Resolved]
